FAERS Safety Report 9772688 (Version 1)
Quarter: 2013Q4

REPORT INFORMATION
  Report Type: Spontaneous
  Country: IT (occurrence: IT)
  Receive Date: 20131219
  Receipt Date: 20131219
  Transmission Date: 20140711
  Serious: Yes (Hospitalization)
  Sender: FDA-Public Use
  Company Number: IT-ABBVIE-13P-083-1181429-00

PATIENT
  Age: 23 Year
  Sex: Male

DRUGS (1)
  1. MACLADIN [Suspect]
     Indication: PYREXIA
     Route: 048
     Dates: start: 20130812, end: 20130814

REACTIONS (2)
  - Palmar-plantar erythrodysaesthesia syndrome [Recovered/Resolved]
  - Chest pain [Recovered/Resolved]
